FAERS Safety Report 17419789 (Version 2)
Quarter: 2020Q2

REPORT INFORMATION
  Report Type: Spontaneous
  Country: US (occurrence: US)
  Receive Date: 20200214
  Receipt Date: 20200604
  Transmission Date: 20200713
  Serious: No
  Sender: FDA-Public Use
  Company Number: US-JNJFOC-20200213307

PATIENT
  Sex: Female
  Weight: 72.64 kg

DRUGS (17)
  1. MULTI VITAMIN                      /08408501/ [Concomitant]
     Active Substance: VITAMINS
     Route: 065
  2. LEFLUNOMIDE. [Concomitant]
     Active Substance: LEFLUNOMIDE
     Route: 048
     Dates: start: 20190817, end: 20191001
  3. PREDNISONE. [Concomitant]
     Active Substance: PREDNISONE
     Dosage: DAILY FOR 5 DAYS
     Route: 065
  4. CHLORDIAZEPOXIDE W/CLIDINIUM BROMIDE [Concomitant]
     Active Substance: CHLORDIAZEPOXIDE\CLIDINIUM BROMIDE
     Dosage: 1-2 AS NEEDED
     Route: 048
  5. PREDNISONE. [Concomitant]
     Active Substance: PREDNISONE
     Dosage: DAILY FOR 5 DAYS
     Route: 065
  6. ESTRACE [Concomitant]
     Active Substance: ESTRADIOL
     Route: 067
  7. SIMPONI ARIA [Suspect]
     Active Substance: GOLIMUMAB
     Indication: PRODUCT USED FOR UNKNOWN INDICATION
     Route: 042
     Dates: start: 201905, end: 201907
  8. FENOFIBRATE. [Concomitant]
     Active Substance: FENOFIBRATE
     Route: 065
  9. FOLIC ACID. [Concomitant]
     Active Substance: FOLIC ACID
     Route: 065
  10. COSENTYX [Concomitant]
     Active Substance: SECUKINUMAB
     Route: 065
     Dates: start: 20200403
  11. VITAMIN D 2000 [Concomitant]
     Active Substance: VITAMIN D NOS
     Route: 065
  12. PREDNISONE. [Concomitant]
     Active Substance: PREDNISONE
     Dosage: DAILY FOR 5 DAYS
     Route: 065
  13. PREDNISONE. [Concomitant]
     Active Substance: PREDNISONE
     Dosage: DAILY FOR 5 DAYS
     Route: 065
  14. ESTRADIOL. [Concomitant]
     Active Substance: ESTRADIOL
     Dosage: 025 PATCH 2 X WEEK ON 3 OFF 1
     Route: 065
  15. TRAMADOL/ACETAMINOPHEN [Concomitant]
     Active Substance: ACETAMINOPHEN\TRAMADOL
     Dosage: 37.5-325 X2- 1 X DAILY
     Route: 065
  16. MELOXICAM. [Concomitant]
     Active Substance: MELOXICAM
     Route: 065
  17. SERTRALINE HYDROCHLORIDE. [Concomitant]
     Active Substance: SERTRALINE HYDROCHLORIDE
     Route: 065

REACTIONS (8)
  - Vomiting [Recovered/Resolved]
  - Pyrexia [Recovered/Resolved]
  - Burning sensation [Recovered/Resolved]
  - Fatigue [Recovered/Resolved]
  - Dyspnoea [Recovered/Resolved]
  - Nausea [Recovered/Resolved]
  - Arthralgia [Recovered/Resolved]
  - Photosensitivity reaction [Recovered/Resolved]

NARRATIVE: CASE EVENT DATE: 2019
